FAERS Safety Report 25331669 (Version 2)
Quarter: 2025Q2

REPORT INFORMATION
  Report Type: Spontaneous
  Country: CN (occurrence: CN)
  Receive Date: 20250519
  Receipt Date: 20250528
  Transmission Date: 20250716
  Serious: Yes (Death, Hospitalization, Other)
  Sender: BRISTOL-MYERS SQUIBB COMPANY
  Company Number: CN-CELGENE-CHN-20220303513

PATIENT
  Age: 63 Year
  Sex: Female
  Weight: 71 kg

DRUGS (14)
  1. AZACITIDINE [Suspect]
     Active Substance: AZACITIDINE
     Indication: Myelodysplastic syndrome
     Route: 058
     Dates: start: 20220222, end: 20220228
  2. VENETOCLAX [Suspect]
     Active Substance: VENETOCLAX
     Indication: Myelodysplastic syndrome
     Route: 048
     Dates: start: 20220222, end: 20220307
  3. REBAMIPIDE [Concomitant]
     Active Substance: REBAMIPIDE
     Indication: Prophylaxis
     Dates: start: 20220222, end: 20220309
  4. TINIDAZOLE [Concomitant]
     Active Substance: TINIDAZOLE
     Indication: Infection prophylaxis
     Route: 048
     Dates: start: 20220222, end: 20220303
  5. ALLOPURINOL [Concomitant]
     Active Substance: ALLOPURINOL
     Indication: Blood uric acid increased
     Dates: start: 20220222, end: 20220309
  6. DOLASETRON MESYLATE [Concomitant]
     Active Substance: DOLASETRON MESYLATE
     Indication: Prophylaxis of nausea and vomiting
     Route: 040
     Dates: start: 20220222, end: 20220228
  7. DOLASETRON MESYLATE [Concomitant]
     Active Substance: DOLASETRON MESYLATE
     Route: 040
     Dates: start: 20220310, end: 20220312
  8. DOLASETRON MESYLATE [Concomitant]
     Active Substance: DOLASETRON MESYLATE
     Route: 040
     Dates: start: 20220312, end: 20220314
  9. DOLASETRON MESYLATE [Concomitant]
     Active Substance: DOLASETRON MESYLATE
     Route: 040
     Dates: start: 20220315, end: 20220415
  10. DOLASETRON MESYLATE [Concomitant]
     Active Substance: DOLASETRON MESYLATE
     Route: 040
     Dates: start: 20220316, end: 20220414
  11. OMEPRAZOLE SODIUM [Concomitant]
     Active Substance: OMEPRAZOLE SODIUM
     Indication: Gastrointestinal disorder prophylaxis
     Dates: start: 20220222, end: 20220225
  12. JIE QING [Concomitant]
     Indication: Infection prophylaxis
     Dosage: DOSE: 2 GOLD
     Dates: start: 20220222, end: 20220303
  13. AMMONIUM GLYCYRRHIZATE\CYSTEINE [Concomitant]
     Active Substance: AMMONIUM GLYCYRRHIZATE\CYSTEINE
     Indication: Prophylaxis
     Route: 042
     Dates: start: 20220222, end: 20220228
  14. LEVOCARNITINE [Concomitant]
     Active Substance: LEVOCARNITINE
     Indication: Fluid replacement
     Dates: start: 20220222, end: 20220228

REACTIONS (13)
  - Upper gastrointestinal haemorrhage [Unknown]
  - Infection [Fatal]
  - General physical health deterioration [Unknown]
  - Pleural effusion [Unknown]
  - Cardiomegaly [Unknown]
  - Anaemia [Unknown]
  - Lacunar infarction [Unknown]
  - Soft tissue swelling [Unknown]
  - Sinusitis [Unknown]
  - Osteoma [Unknown]
  - Pericardial effusion [Unknown]
  - Pulmonary artery wall hypertrophy [Unknown]
  - Lymphadenopathy [Unknown]

NARRATIVE: CASE EVENT DATE: 20220224
